FAERS Safety Report 13717509 (Version 3)
Quarter: 2022Q3

REPORT INFORMATION
  Report Type: Report from Study
  Country: CA (occurrence: CA)
  Receive Date: 20170705
  Receipt Date: 20220711
  Transmission Date: 20221026
  Serious: Yes (Hospitalization)
  Sender: FDA-Public Use
  Company Number: CA-JNJFOC-20161204570

PATIENT
  Age: 69 Year
  Sex: Female

DRUGS (3)
  1. GOLIMUMAB [Suspect]
     Active Substance: GOLIMUMAB
     Indication: Rheumatoid arthritis
     Route: 041
     Dates: start: 20150603, end: 20170406
  2. ANCEF [CEFRADINE] [Concomitant]
     Indication: Product used for unknown indication
  3. CEPHALEXIN [Concomitant]
     Active Substance: CEPHALEXIN
     Indication: Product used for unknown indication

REACTIONS (5)
  - Hip fracture [Recovered/Resolved]
  - Wrist fracture [Recovered/Resolved]
  - Fall [Recovered/Resolved]
  - Device related infection [Recovering/Resolving]
  - Hip arthroplasty [Recovered/Resolved]

NARRATIVE: CASE EVENT DATE: 20161104
